FAERS Safety Report 7998287-1 (Version None)
Quarter: 2011Q4

REPORT INFORMATION
  Report Type: 
  Country: None (occurrence: None)
  Receive Date: 20111221
  Receipt Date: 20110616
  Transmission Date: 20120403
  Serious: No
  Sender: FDA-Public Use
  Company Number: US-GLAXOSMITHKLINE-A0931743A

PATIENT
  Age: 57 Year
  Sex: Female

DRUGS (14)
  1. BENICAR [Concomitant]
  2. MULTI-VITAMIN [Concomitant]
  3. VITAMIN D [Concomitant]
  4. ASPIRIN [Concomitant]
  5. CALCIUM [Concomitant]
  6. NEFAZODONE HCL [Concomitant]
  7. ACTOS [Concomitant]
  8. NORTRIPTYLINE HCL [Concomitant]
  9. LEVOXYL [Concomitant]
  10. FEMARA [Concomitant]
  11. LOVAZA [Suspect]
     Indication: BLOOD TRIGLYCERIDES INCREASED
     Dosage: 4MG PER DAY
     Route: 048
     Dates: start: 20090601
  12. BYSTOLIC [Concomitant]
  13. IRON [Concomitant]
  14. FUROSEMIDE [Concomitant]

REACTIONS (3)
  - EXPIRED DRUG ADMINISTERED [None]
  - PRODUCT QUALITY ISSUE [None]
  - DRUG INEFFECTIVE [None]
